FAERS Safety Report 5859112-8 (Version None)
Quarter: 2008Q3

REPORT INFORMATION
  Report Type: 
  Country: None (occurrence: None)
  Receive Date: 20080827
  Receipt Date: 20080819
  Transmission Date: 20090109
  Serious: Yes (Hospitalization, Other)
  Sender: FDA-Public Use
  Company Number: PHHY2008CA17564

PATIENT
  Age: 35 Year
  Sex: Male

DRUGS (5)
  1. LIORESAL [Suspect]
     Indication: MUSCLE SPASMS
     Dosage: 120MG
     Route: 048
     Dates: start: 20000101, end: 20080808
  2. LIORESAL [Suspect]
     Dosage: 10 MG, TID
     Route: 048
  3. TIMENTIN [Concomitant]
  4. CIPRO [Concomitant]
  5. LORAZEPAM [Concomitant]

REACTIONS (9)
  - AGITATION [None]
  - AKATHISIA [None]
  - BLOOD CREATININE INCREASED [None]
  - CONFUSIONAL STATE [None]
  - NEPHROLITHIASIS [None]
  - NEPHROSTOMY TUBE PLACEMENT [None]
  - PAIN [None]
  - PARANOIA [None]
  - RENAL FAILURE [None]
